FAERS Safety Report 9630252 (Version 1)
Quarter: 2013Q4

REPORT INFORMATION
  Report Type: Spontaneous
  Country: US (occurrence: US)
  Receive Date: 20131017
  Receipt Date: 20131017
  Transmission Date: 20140711
  Serious: No
  Sender: FDA-Public Use
  Company Number: US-009507513-1310USA006588

PATIENT
  Age: 45 Year
  Sex: Female

DRUGS (8)
  1. NASONEX [Suspect]
     Indication: SINUS CONGESTION
     Dosage: DOSAGE FORM: 50 MCG; 2 SPRAYS INTO EACH NOTRIL ONCE DAILY
     Route: 045
     Dates: start: 20130923
  2. NASONEX [Suspect]
     Indication: SINUS HEADACHE
  3. NASONEX [Suspect]
     Indication: HOUSE DUST ALLERGY
  4. NASONEX [Suspect]
     Indication: HYPERSENSITIVITY
  5. IBUPROFEN [Concomitant]
     Indication: EYE IRRITATION
     Dosage: 2 TABLETS (200 MG) UP TO 6 TABLETS WITHIN 24 HOURS
     Route: 048
     Dates: start: 20130923, end: 20130923
  6. IBUPROFEN [Concomitant]
     Indication: NASAL CONGESTION
  7. VISINE A [Concomitant]
     Indication: DRY EYE
     Dosage: 1 TO DROPS IN AFFECTED EYE
     Route: 047
     Dates: start: 20130923, end: 20130923
  8. VISINE A [Concomitant]
     Indication: EYE IRRITATION

REACTIONS (5)
  - Therapeutic response unexpected [Unknown]
  - Therapeutic response unexpected [Unknown]
  - Eye pain [Unknown]
  - Eye pain [Unknown]
  - Dry eye [Unknown]
